FAERS Safety Report 9018142 (Version 1)
Quarter: 2013Q1

REPORT INFORMATION
  Report Type: Report from Study
  Country: GB (occurrence: GB)
  Receive Date: 20130117
  Receipt Date: 20130117
  Transmission Date: 20140127
  Serious: Yes (Death)
  Sender: FDA-Public Use
  Company Number: GB-AMGEN-GBRCT2013002991

PATIENT
  Age: 86 Year
  Sex: Female

DRUGS (1)
  1. ETANERCEPT [Suspect]
     Indication: RHEUMATOID ARTHRITIS
     Dosage: 25 MG, 2 TIMES/WK
     Dates: start: 20040206, end: 20080729

REACTIONS (3)
  - Pneumonia aspiration [Fatal]
  - Myocardial ischaemia [Fatal]
  - Cerebrovascular accident [Fatal]
